FAERS Safety Report 14772154 (Version 1)
Quarter: 2018Q2

REPORT INFORMATION
  Report Type: Spontaneous
  Country: JP (occurrence: JP)
  Receive Date: 20180418
  Receipt Date: 20180418
  Transmission Date: 20180711
  Serious: Yes (Hospitalization, Disabling, Other)
  Sender: FDA-Public Use
  Company Number: JP-BRISTOL-MYERS SQUIBB COMPANY-BMS-2017-077962

PATIENT
  Age: 65 Year
  Sex: Male

DRUGS (2)
  1. OPDIVO [Suspect]
     Active Substance: NIVOLUMAB
     Indication: MALIGNANT MELANOMA
     Dosage: 3 MG/KG, Q2WK
     Route: 041
     Dates: start: 20170711
  2. YERVOY [Suspect]
     Active Substance: IPILIMUMAB
     Indication: MALIGNANT MELANOMA
     Dosage: 717.5 MG, Q3WK
     Route: 041
     Dates: start: 20171114, end: 20171227

REACTIONS (4)
  - Hyperglycaemia [Not Recovered/Not Resolved]
  - Uveitis [Not Recovered/Not Resolved]
  - Adrenal insufficiency [Not Recovered/Not Resolved]
  - Hypogonadism [Not Recovered/Not Resolved]

NARRATIVE: CASE EVENT DATE: 20170714
